FAERS Safety Report 8407486-6 (Version None)
Quarter: 2012Q2

REPORT INFORMATION
  Report Type: 
  Country: None (occurrence: None)
  Receive Date: 20120604
  Receipt Date: 20120529
  Transmission Date: 20120825
  Serious: Yes (Other)
  Sender: FDA-Public Use
  Company Number: JP-PFIZER INC-2012093075

PATIENT
  Age: 78 Year
  Sex: Female

DRUGS (6)
  1. EVISTA [Concomitant]
     Indication: OSTEOPOROSIS
     Dosage: 60 MG, 1X/DAY
     Route: 048
     Dates: start: 20111209
  2. ETODOLAC [Concomitant]
     Indication: PAIN
     Dosage: 200 MG, 2X/DAY
     Route: 048
     Dates: start: 20120206
  3. LOXONIN [Concomitant]
     Indication: ANALGESIC THERAPY
     Dosage: 50 MG, 1X/DAY
     Route: 061
     Dates: start: 20120206
  4. LYRICA [Suspect]
     Indication: NEURALGIA
     Dosage: 50 MG, 2X/DAY
     Route: 048
     Dates: start: 20120313, end: 20120315
  5. MUCOSTA [Concomitant]
     Indication: ABDOMINAL PAIN UPPER
     Dosage: 100 MG, 2X/DAY
     Route: 048
     Dates: start: 20120206
  6. ONE-ALPHA [Concomitant]
     Indication: OSTEOPOROSIS
     Dosage: 1.0 UG, 1X/DAY
     Route: 048
     Dates: start: 20111209

REACTIONS (2)
  - DEPRESSED LEVEL OF CONSCIOUSNESS [None]
  - FALL [None]
